FAERS Safety Report 13742236 (Version 1)
Quarter: 2017Q3

REPORT INFORMATION
  Report Type: Spontaneous
  Country: JP (occurrence: JP)
  Receive Date: 20170711
  Receipt Date: 20170711
  Transmission Date: 20171127
  Serious: Yes (Other)
  Sender: FDA-Public Use
  Company Number: PHHY2010JP58097

PATIENT
  Age: 76 Year
  Sex: Female

DRUGS (4)
  1. MIKELAN [Suspect]
     Active Substance: CARTEOLOL HYDROCHLORIDE
     Indication: VISION BLURRED
     Dosage: UNK
     Route: 047
     Dates: start: 20100803, end: 20100820
  2. HYALEIN [Concomitant]
     Active Substance: HYALURONATE SODIUM
     Dosage: UNK
     Dates: start: 20100803
  3. CONIEL [Concomitant]
     Active Substance: BENIDIPINE HYDROCHLORIDE
     Dosage: UNK
  4. AZELNIDIPINE [Concomitant]
     Active Substance: AZELNIDIPINE
     Dosage: 16 MG/DAY

REACTIONS (4)
  - Dysgeusia [Recovering/Resolving]
  - Buccal mucosal roughening [Recovering/Resolving]
  - Ageusia [Recovering/Resolving]
  - Tongue disorder [Recovering/Resolving]

NARRATIVE: CASE EVENT DATE: 20100813
